FAERS Safety Report 9222820 (Version 1)
Quarter: 2013Q2

REPORT INFORMATION
  Report Type: Spontaneous
  Country: US (occurrence: US)
  Receive Date: 20130410
  Receipt Date: 20130410
  Transmission Date: 20140414
  Serious: No
  Sender: FDA-Public Use
  Company Number: US-009507513-1304USA003284

PATIENT
  Age: 28 Year
  Sex: Female

DRUGS (2)
  1. SINGULAIR [Suspect]
     Indication: ASTHMA
     Dosage: TWO 5 MG
     Route: 048
     Dates: start: 20130403
  2. NEXIUM [Concomitant]

REACTIONS (4)
  - Headache [Unknown]
  - Somnolence [Unknown]
  - Dizziness [Unknown]
  - Headache [Unknown]
